FAERS Safety Report 5882017-3 (Version None)
Quarter: 2008Q3

REPORT INFORMATION
  Report Type: 
  Country: None (occurrence: None)
  Receive Date: 20080912
  Receipt Date: 20080718
  Transmission Date: 20090109
  Serious: No
  Sender: FDA-Public Use
  Company Number: US-ABBOTT-08P-163-0465063-00

PATIENT
  Sex: Female
  Weight: 49.486 kg

DRUGS (3)
  1. HUMIRA [Suspect]
     Indication: COLITIS
     Route: 050
     Dates: start: 20080401, end: 20080618
  2. LIALDA [Concomitant]
     Indication: COLITIS
     Dosage: 2 TABLETS TWICE A DAY
     Route: 048
  3. MULTI-VITAMIN [Concomitant]
     Indication: VITAMIN SUPPLEMENTATION
     Route: 048

REACTIONS (2)
  - DRUG INEFFECTIVE [None]
  - HAEMATOCHEZIA [None]
